FAERS Safety Report 6646571-6 (Version None)
Quarter: 2010Q1

REPORT INFORMATION
  Report Type: 
  Country: None (occurrence: None)
  Receive Date: 20100323
  Receipt Date: 20100316
  Transmission Date: 20100710
  Serious: Yes (Hospitalization)
  Sender: FDA-Public Use
  Company Number: TR-ELI_LILLY_AND_COMPANY-TR201003004757

PATIENT
  Sex: Female

DRUGS (2)
  1. HUMALOG [Suspect]
     Indication: DIABETES MELLITUS
     Dosage: 18 U, 3/D
     Route: 058
     Dates: start: 20090811
  2. LEVEMIR [Concomitant]
     Indication: DIABETES MELLITUS
     Dosage: 26 U, DAILY (1/D)
     Route: 058

REACTIONS (6)
  - BLOOD GLUCOSE INCREASED [None]
  - INJECTION SITE ERYTHEMA [None]
  - INJECTION SITE HAEMATOMA [None]
  - INJECTION SITE INFLAMMATION [None]
  - PAIN IN EXTREMITY [None]
  - WEIGHT INCREASED [None]
